FAERS Safety Report 6614964-9 (Version None)
Quarter: 2010Q1

REPORT INFORMATION
  Report Type: 
  Country: None (occurrence: None)
  Receive Date: 20100226
  Receipt Date: 20100215
  Transmission Date: 20100710
  Serious: Yes (Other)
  Sender: FDA-Public Use
  Company Number: 2010AP000192

PATIENT
  Age: 59 Year
  Sex: Female

DRUGS (9)
  1. ALENDRONATE SODIUM [Suspect]
     Indication: OSTEOPOROSIS
     Dosage: 1 DF;PO;QW
     Route: 048
     Dates: start: 20091103, end: 20091125
  2. CALCIUM CARBONATE [Concomitant]
  3. COLESCALCIFEROL (COLECALCIFEROL) [Concomitant]
  4. BUCLIZINE HYDROCHLORIDE (BUCLIZINE HYDROCHLORIDE) [Concomitant]
  5. CODEINE PHOSPHATE (CODEINE PHOSPHATE) [Concomitant]
  6. ACETAMINOPHEN [Concomitant]
  7. PREDNISOLONE [Concomitant]
  8. PREDNISOLONE [Concomitant]
  9. CORTICOSTERIOD NOS (CORTICOSTERIOD NOS ) [Concomitant]

REACTIONS (1)
  - MIGRAINE [None]
